FAERS Safety Report 18143804 (Version 1)
Quarter: 2020Q3

REPORT INFORMATION
  Report Type: Spontaneous
  Country: ZA (occurrence: ZA)
  Receive Date: 20200812
  Receipt Date: 20200812
  Transmission Date: 20201103
  Serious: Yes (Hospitalization)
  Sender: FDA-Public Use
  Company Number: ZA-ROCHE-2649570

PATIENT
  Sex: Female
  Weight: 80 kg

DRUGS (1)
  1. ACTEMRA [Suspect]
     Active Substance: TOCILIZUMAB
     Indication: COVID-19 PNEUMONIA
     Dosage: STAT
     Route: 042
     Dates: start: 20200723

REACTIONS (6)
  - Off label use [Unknown]
  - Intentional product use issue [Unknown]
  - Cough [Unknown]
  - Dyspnoea [Unknown]
  - No adverse event [Unknown]
  - Diarrhoea [Unknown]
